FAERS Safety Report 23276875 (Version 1)
Quarter: 2023Q4

REPORT INFORMATION
  Report Type: Spontaneous
  Country: US (occurrence: US)
  Receive Date: 20231208
  Receipt Date: 20231208
  Transmission Date: 20240110
  Serious: No
  Sender: FDA-Public Use
  Company Number: US-AMERICAN REGENT INC-2023000247

PATIENT
  Sex: Female
  Weight: 107.39 kg

DRUGS (10)
  1. VENOFER [Suspect]
     Active Substance: IRON SUCROSE
     Indication: Iron deficiency anaemia
     Dosage: UNK UNKNOWN
     Route: 042
     Dates: start: 201703, end: 201703
  2. VENOFER [Suspect]
     Active Substance: IRON SUCROSE
     Dosage: UNK UNKNOWN
     Route: 042
     Dates: start: 201703, end: 201703
  3. VENOFER [Suspect]
     Active Substance: IRON SUCROSE
     Dosage: UNK UNKNOWN
     Route: 042
     Dates: start: 201703, end: 201703
  4. VENOFER [Suspect]
     Active Substance: IRON SUCROSE
     Dosage: UNK UNKNOWN
     Route: 042
     Dates: start: 201703, end: 201703
  5. VENOFER [Suspect]
     Active Substance: IRON SUCROSE
     Dosage: UNK UNKNOWN
     Route: 042
     Dates: start: 201703, end: 201703
  6. LEVEMIR [Concomitant]
     Active Substance: INSULIN DETEMIR
     Indication: Type 2 diabetes mellitus
     Dosage: 10 INTERNATIONAL UNIT AT NIGHT
     Route: 065
  7. NOVOLIN R [Concomitant]
     Active Substance: INSULIN HUMAN
     Indication: Type 2 diabetes mellitus
     Dosage: 100 UNIT/ML AS DIRECTED WITH MEALS.
     Route: 065
  8. CHOLECALCIFEROL [Concomitant]
     Active Substance: CHOLECALCIFEROL
     Indication: Vitamin D deficiency
     Dosage: 5000 INTERNATIONAL UNIT, ONCE WEEKLY
     Route: 048
  9. FERROUS GLUCONATE [Concomitant]
     Active Substance: FERROUS GLUCONATE
     Indication: Iron deficiency anaemia
     Dosage: 325 MILLIGRAM, QD
     Route: 048
  10. HUMALOG [Concomitant]
     Active Substance: INSULIN LISPRO
     Indication: Type 2 diabetes mellitus

REACTIONS (2)
  - Pain [Unknown]
  - Off label use [Unknown]

NARRATIVE: CASE EVENT DATE: 20170101
